FAERS Safety Report 6415795-5 (Version None)
Quarter: 2009Q4

REPORT INFORMATION
  Report Type: 
  Country: None (occurrence: None)
  Receive Date: 20091027
  Receipt Date: 20091015
  Transmission Date: 20100525
  Serious: Yes (Other)
  Sender: FDA-Public Use
  Company Number: US-PFIZER INC-2009275361

PATIENT
  Sex: Female
  Weight: 36.74 kg

DRUGS (3)
  1. AZITHROMYCIN [Suspect]
     Indication: UPPER RESPIRATORY TRACT INFECTION
     Dosage: UNK
     Route: 048
     Dates: start: 20090922, end: 20090923
  2. AZITHROMYCIN [Suspect]
     Indication: OTITIS MEDIA ACUTE
  3. AZITHROMYCIN [Suspect]
     Indication: SINUSITIS

REACTIONS (3)
  - AMNESIA [None]
  - COUGH [None]
  - DISTURBANCE IN ATTENTION [None]
